FAERS Safety Report 6083587-5 (Version None)
Quarter: 2009Q1

REPORT INFORMATION
  Report Type: 
  Country: None (occurrence: None)
  Receive Date: 20090219
  Receipt Date: 20090216
  Transmission Date: 20090719
  Serious: Yes (Death, Other)
  Sender: FDA-Public Use
  Company Number: PHHY2008JP31578

PATIENT
  Sex: Female

DRUGS (14)
  1. DIOVAN [Suspect]
     Indication: HYPERTENSION
     Dosage: 80 MG, QD
     Route: 048
     Dates: start: 20070925
  2. MAINTATE [Concomitant]
     Indication: HYPERTENSION
     Dosage: 5 MG
     Route: 048
  3. ADALAT CC [Concomitant]
     Indication: HYPERTENSION
     Dosage: 20 MG
     Route: 048
  4. ODRIK [Concomitant]
     Indication: HYPERTENSION
     Dosage: 1 MG
     Route: 048
     Dates: end: 20070924
  5. MERISLON [Concomitant]
     Dosage: 18 MG
     Route: 048
  6. ARTANE [Concomitant]
     Dosage: 6 MG
     Route: 048
  7. DIAZEPAM [Concomitant]
     Dosage: 6 MG
     Route: 048
  8. DOGMATYL [Concomitant]
     Dosage: 100 MG
     Route: 048
  9. GRAMALIL [Concomitant]
     Dosage: 100 MG
     Route: 048
  10. HALCION [Concomitant]
     Dosage: 0.25 MG
     Route: 048
  11. DEPAS [Concomitant]
     Dosage: 1 MG
     Route: 048
  12. MEVALOTIN [Concomitant]
     Dosage: 5 MG
     Route: 048
  13. CYANOCOBALAMIN [Concomitant]
     Dosage: 1500 UG
     Route: 048
  14. FRANDOL [Concomitant]
     Dosage: 40 MG

REACTIONS (2)
  - BLOOD PRESSURE SYSTOLIC INCREASED [None]
  - SUDDEN DEATH [None]
